FAERS Safety Report 6142738-4 (Version None)
Quarter: 2009Q2

REPORT INFORMATION
  Report Type: 
  Country: None (occurrence: None)
  Receive Date: 20090403
  Receipt Date: 20090325
  Transmission Date: 20091009
  Serious: Yes (Other)
  Sender: FDA-Public Use
  Company Number: US-JNJFOC-20090307258

PATIENT
  Sex: Female
  Weight: 108.41 kg

DRUGS (1)
  1. REMICADE [Suspect]
     Indication: RHEUMATOID ARTHRITIS
     Dosage: ALSO REPORTED AS 10 VIALS
     Route: 042

REACTIONS (2)
  - CONFUSIONAL STATE [None]
  - MOBILITY DECREASED [None]
